FAERS Safety Report 5097238-X (Version None)
Quarter: 2006Q3

REPORT INFORMATION
  Report Type: 
  Country: None (occurrence: None)
  Receive Date: 20060906
  Receipt Date: 20060830
  Transmission Date: 20061208
  Serious: Yes (Hospitalization)
  Sender: FDA-Public Use
  Company Number: 2006CG01432

PATIENT
  Age: 76 Year
  Sex: Female

DRUGS (4)
  1. NEXIUM [Suspect]
     Route: 048
     Dates: end: 20060701
  2. MOPRAL [Suspect]
     Route: 048
     Dates: end: 20060701
  3. ROCEPHIN [Suspect]
     Route: 058
     Dates: start: 20060616, end: 20060704
  4. SOLIAN [Suspect]
     Route: 048
     Dates: end: 20060701

REACTIONS (4)
  - BLISTER [None]
  - RHEUMATOID FACTOR POSITIVE [None]
  - VASCULAR PURPURA [None]
  - VASCULITIS [None]
